FAERS Safety Report 24585865 (Version 2)
Quarter: 2025Q3

REPORT INFORMATION
  Report Type: Report from Study
  Country: US (occurrence: US)
  Receive Date: 20241106
  Receipt Date: 20250810
  Transmission Date: 20251020
  Serious: Yes (Other)
  Sender: ALEXION PHARMACEUTICALS
  Company Number: US-AstraZeneca-CH-00737020A

PATIENT
  Age: 35 Year
  Sex: Female

DRUGS (1)
  1. STRENSIQ [Suspect]
     Active Substance: ASFOTASE ALFA
     Indication: Hypophosphatasia

REACTIONS (13)
  - Mental impairment [Unknown]
  - Oropharyngeal discomfort [Recovering/Resolving]
  - Dyspepsia [Unknown]
  - Diarrhoea [Recovering/Resolving]
  - Paranoia [Recovering/Resolving]
  - Bradycardia [Recovering/Resolving]
  - Pain [Recovering/Resolving]
  - Chest discomfort [Unknown]
  - Constipation [Unknown]
  - Pharyngeal swelling [Unknown]
  - Fatigue [Unknown]
  - Fungal infection [Unknown]
  - Throat irritation [Unknown]

NARRATIVE: CASE EVENT DATE: 20241029
